FAERS Safety Report 8354027-8 (Version None)
Quarter: 2012Q2

REPORT INFORMATION
  Report Type: 
  Country: None (occurrence: None)
  Receive Date: 20120511
  Receipt Date: 20101228
  Transmission Date: 20120825
  Serious: No
  Sender: FDA-Public Use
  Company Number: US-TEVA-2010006617

PATIENT
  Sex: Female
  Weight: 83.99 kg

DRUGS (3)
  1. CYMBALTA [Concomitant]
     Dates: start: 20080101
  2. ABILIFY [Concomitant]
     Dates: start: 20100601
  3. NUVIGIL [Suspect]
     Indication: POOR QUALITY SLEEP
     Dosage: 150 MILLIGRAM;
     Route: 048
     Dates: start: 20100901

REACTIONS (1)
  - SOMNOLENCE [None]
